FAERS Safety Report 4528976-2 (Version None)
Quarter: 2004Q4

REPORT INFORMATION
  Report Type: 
  Country: None (occurrence: None)
  Receive Date: 20041214
  Receipt Date: 20041202
  Transmission Date: 20050328
  Serious: Yes (Other)
  Sender: FDA-Public Use
  Company Number: 2004103580

PATIENT
  Age: 60 Year
  Sex: Female

DRUGS (2)
  1. NEURONTIN [Suspect]
     Indication: NEUROPATHIC PAIN
     Dosage: ORAL
     Route: 048
  2. ALL OTHER THERAPEUTIC PRODUCTS (ALL OTHER THERAPEUTIC PRODUCTS) [Concomitant]

REACTIONS (1)
  - HERPES ZOSTER [None]
